FAERS Safety Report 7388310-X (Version None)
Quarter: 2011Q2

REPORT INFORMATION
  Report Type: 
  Country: None (occurrence: None)
  Receive Date: 20110401
  Receipt Date: 20110323
  Transmission Date: 20111010
  Serious: Yes (Hospitalization, Other)
  Sender: FDA-Public Use
  Company Number: US-ALEXION-A201001557

PATIENT
  Sex: Female

DRUGS (11)
  1. ANTIBIOTICS [Suspect]
     Indication: DEVICE RELATED INFECTION
  2. VITAMIN B-12 [Concomitant]
     Dosage: 1, Q MONTH
     Route: 030
  3. NEPHROCAPS [Concomitant]
     Dosage: UNK
  4. CALCIUM [Concomitant]
     Dosage: UNK
  5. COUMADIN [Concomitant]
     Dosage: UNK
  6. IRON [Concomitant]
     Dosage: UNK
  7. SOLIRIS [Suspect]
     Indication: PAROXYSMAL NOCTURNAL HAEMOGLOBINURIA
     Dosage: UNK
     Route: 042
  8. VITAMIN D [Concomitant]
     Dosage: UNK
  9. CAPTOPRIL [Concomitant]
     Indication: HYPERTENSION
     Dosage: UNK
  10. FOLIC ACID [Concomitant]
     Dosage: UNK
  11. METOPROLOL [Concomitant]
     Indication: HYPERTENSION
     Dosage: UNK

REACTIONS (9)
  - PULMONARY OEDEMA [None]
  - INFLUENZA [None]
  - ADVERSE DRUG REACTION [None]
  - RESPIRATORY DISTRESS [None]
  - HAEMOGLOBIN DECREASED [None]
  - DEVICE RELATED INFECTION [None]
  - HYPERTENSION [None]
  - PRURITUS GENERALISED [None]
  - SWELLING FACE [None]
